FAERS Safety Report 6984016-7 (Version None)
Quarter: 2010Q3

REPORT INFORMATION
  Report Type: 
  Country: None (occurrence: None)
  Receive Date: 20100915
  Receipt Date: 20090511
  Transmission Date: 20110219
  Serious: No
  Sender: FDA-Public Use
  Company Number: US-WYE-H09314909

PATIENT
  Sex: Female

DRUGS (5)
  1. PRISTIQ [Suspect]
     Indication: DEPRESSION
     Route: 048
     Dates: start: 20090427
  2. YEAST [Concomitant]
  3. OS-CAL + D [Concomitant]
  4. SINEMET [Concomitant]
  5. BENICAR [Concomitant]

REACTIONS (2)
  - MUCOSAL DISCOLOURATION [None]
  - ORAL DISORDER [None]
